FAERS Safety Report 23686874 (Version 1)
Quarter: 2024Q1

REPORT INFORMATION
  Report Type: Spontaneous
  Country: US (occurrence: None)
  Receive Date: 20240329
  Receipt Date: 20240329
  Transmission Date: 20240409
  Serious: Yes (Other)
  Sender: FDA-Public Use
  Company Number: US-ROCHE-3530159

PATIENT
  Sex: Male
  Weight: 67.192 kg

DRUGS (1)
  1. TAMIFLU [Suspect]
     Active Substance: OSELTAMIVIR PHOSPHATE
     Indication: Influenza
     Route: 048
     Dates: start: 20240313, end: 20240314

REACTIONS (5)
  - Hallucination [Recovered/Resolved]
  - Anger [Recovered/Resolved]
  - Amnesia [Unknown]
  - Suicidal ideation [Recovered/Resolved]
  - Ill-defined disorder [Unknown]

NARRATIVE: CASE EVENT DATE: 20240313
